FAERS Safety Report 19716594 (Version 1)
Quarter: 2021Q3

REPORT INFORMATION
  Report Type: Spontaneous
  Country: US (occurrence: US)
  Receive Date: 20210819
  Receipt Date: 20210819
  Transmission Date: 20211014
  Serious: Yes (Hospitalization, Other)
  Sender: FDA-Public Use
  Company Number: US-SPECGX-T202101725

PATIENT
  Sex: Male
  Weight: 105 kg

DRUGS (3)
  1. XTAMPZA ER [Suspect]
     Active Substance: OXYCODONE
     Indication: PAIN
     Dosage: 36 MILLIGRAM, BID
     Route: 048
     Dates: start: 20200401
  2. XTAMPZA ER [Suspect]
     Active Substance: OXYCODONE
     Indication: FIBROMYALGIA
     Dosage: UNK (LIMITED TO A QUANTITY OF ONE WEEK)
     Route: 048
  3. OXYCODONE [Suspect]
     Active Substance: OXYCODONE
     Indication: PRODUCT USED FOR UNKNOWN INDICATION
     Dosage: UNK
     Route: 065

REACTIONS (2)
  - Major depression [Unknown]
  - Overdose [Recovered/Resolved]
